FAERS Safety Report 8136488-2 (Version None)
Quarter: 2012Q1

REPORT INFORMATION
  Report Type: 
  Country: None (occurrence: None)
  Receive Date: 20120214
  Receipt Date: 20120206
  Transmission Date: 20120608
  Serious: Yes (Hospitalization, Other)
  Sender: FDA-Public Use
  Company Number: ES-ABBOTT-12P-144-0897312-00

PATIENT
  Age: 30 Year
  Sex: Male

DRUGS (2)
  1. DEPAKENE [Suspect]
     Indication: PARTIAL SEIZURES
     Dosage: 500 MG DAILY
  2. DEPAKENE [Suspect]

REACTIONS (2)
  - HYPERAMMONAEMIC ENCEPHALOPATHY [None]
  - TOXICITY TO VARIOUS AGENTS [None]
